FAERS Safety Report 24159000 (Version 3)
Quarter: 2024Q4

REPORT INFORMATION
  Report Type: Report from Study
  Country: US (occurrence: US)
  Receive Date: 20240731
  Receipt Date: 20241218
  Transmission Date: 20250115
  Serious: Yes (Other)
  Sender: AURINIA PHARMACEUTICALS
  Company Number: US-AURINIA PHARMACEUTICALS INC.-AUR-005384

PATIENT
  Age: 27 Year
  Sex: Female

DRUGS (3)
  1. LUPKYNIS [Suspect]
     Active Substance: VOCLOSPORIN
     Indication: Lupus nephritis
     Dosage: 15.8 MILLIGRAM IN THE MORNING AND 7.9 MILLIGRAM IN THE EVENING
     Route: 048
     Dates: start: 20230718
  2. LUPKYNIS [Suspect]
     Active Substance: VOCLOSPORIN
     Dosage: 15.8 MILLIGRAM IN THE MORNING AND 7.9 MILLIGRAM IN THE EVENING
     Route: 048
  3. CELLCEPT [Suspect]
     Active Substance: MYCOPHENOLATE MOFETIL
     Indication: Product used for unknown indication
     Dosage: UNK

REACTIONS (9)
  - Pericardial effusion [Unknown]
  - Blood creatinine increased [Unknown]
  - Heavy menstrual bleeding [Unknown]
  - Dysmenorrhoea [Not Recovered/Not Resolved]
  - Menstruation irregular [Unknown]
  - COVID-19 [Unknown]
  - Endometriosis [Unknown]
  - Implant site haemorrhage [Unknown]
  - Gait disturbance [Unknown]

NARRATIVE: CASE EVENT DATE: 20240201
